FAERS Safety Report 6894818-3 (Version None)
Quarter: 2010Q3

REPORT INFORMATION
  Report Type: 
  Country: None (occurrence: None)
  Receive Date: 20100730
  Receipt Date: 20100730
  Transmission Date: 20110219
  Serious: Yes (Other)
  Sender: FDA-Public Use
  Company Number: None

PATIENT
  Sex: Male
  Weight: 97.5234 kg

DRUGS (1)
  1. ACANYA [Suspect]
     Indication: INGROWN HAIR
     Dosage: CLINDAMYCIN PHOSPHATE 1.2% AND BENZOYL PEROXIDE GEL  2.5%
     Dates: start: 20100701, end: 20100720

REACTIONS (5)
  - ABDOMINAL PAIN UPPER [None]
  - BURNING SENSATION [None]
  - DRY MOUTH [None]
  - DRY THROAT [None]
  - PRODUCT QUALITY ISSUE [None]
